FAERS Safety Report 16176988 (Version 1)
Quarter: 2019Q2

REPORT INFORMATION
  Report Type: Report from Study
  Country: None (occurrence: US)
  Receive Date: 20190409
  Receipt Date: 20190409
  Transmission Date: 20190711
  Serious: Yes (Hospitalization, Other)
  Sender: FDA-Public Use
  Company Number: US-ABBVIE-19S-163-2732232-00

PATIENT
  Age: 73 Year
  Sex: Male

DRUGS (1)
  1. CREON [Suspect]
     Active Substance: PANCRELIPASE AMYLASE\PANCRELIPASE LIPASE\PANCRELIPASE PROTEASE
     Indication: PRODUCT USED FOR UNKNOWN INDICATION
     Route: 048

REACTIONS (11)
  - Pancreatic carcinoma [Unknown]
  - Peripheral artery stent insertion [Unknown]
  - Abdominal operation [Unknown]
  - Vomiting [Unknown]
  - Coronary angioplasty [Unknown]
  - Flatulence [Unknown]
  - Coronary arterial stent insertion [Unknown]
  - Pancreaticoduodenectomy [Unknown]
  - Adenocarcinoma pancreas [Unknown]
  - Abdominal distension [Unknown]
  - Abdominal pain lower [Unknown]

NARRATIVE: CASE EVENT DATE: 2004
